FAERS Safety Report 5120515-0 (Version None)
Quarter: 2006Q4

REPORT INFORMATION
  Report Type: 
  Country: None (occurrence: None)
  Receive Date: 20061004
  Receipt Date: 20060821
  Transmission Date: 20070319
  Serious: Yes (Hospitalization)
  Sender: FDA-Public Use
  Company Number: FR-AVENTIS-200612886FR

PATIENT
  Age: 46 Year
  Sex: Male
  Weight: 165 kg

DRUGS (5)
  1. FLAGYL [Suspect]
     Indication: CHRONIC SINUSITIS
     Route: 048
     Dates: start: 20060707, end: 20060715
  2. SOLUPRED                           /00016209/ [Suspect]
     Indication: CHRONIC SINUSITIS
     Route: 048
     Dates: start: 20060707, end: 20060713
  3. KETEK [Suspect]
     Indication: CHRONIC SINUSITIS
     Route: 048
     Dates: start: 20060707, end: 20060715
  4. MUCOMYST                           /00082801/ [Suspect]
     Indication: CHRONIC SINUSITIS
     Route: 048
     Dates: start: 20060707, end: 20060717
  5. BECONASE [Concomitant]
     Indication: CHRONIC SINUSITIS
     Route: 055
     Dates: start: 20060707, end: 20060722

REACTIONS (2)
  - ABDOMINAL PAIN [None]
  - PANCREATITIS ACUTE [None]
